FAERS Safety Report 14303729 (Version 2)
Quarter: 2018Q4

REPORT INFORMATION
  Report Type: Report from Study
  Country: None (occurrence: IN)
  Receive Date: 20171219
  Receipt Date: 20181003
  Transmission Date: 20190204
  Serious: Yes (Death, Other)
  Sender: FDA-Public Use
  Company Number: IN-BAUSCH-BL-2017-034023

PATIENT
  Age: 59 Year
  Sex: Female

DRUGS (6)
  1. THALIDOMIDE [Suspect]
     Active Substance: THALIDOMIDE
     Indication: MYELOMA CAST NEPHROPATHY
     Dosage: 50 TO 100 MG PER DAILY
     Route: 048
  2. DEXAMETHASONE. [Suspect]
     Active Substance: DEXAMETHASONE
     Indication: MYELOMA CAST NEPHROPATHY
  3. BORTEZOMIB. [Suspect]
     Active Substance: BORTEZOMIB
     Indication: PLASMA CELL MYELOMA
     Dosage: ON DAY 1, 8, 15, 22 ; CYCLICAL
     Route: 058
  4. BORTEZOMIB. [Suspect]
     Active Substance: BORTEZOMIB
     Indication: MYELOMA CAST NEPHROPATHY
  5. THALIDOMIDE [Suspect]
     Active Substance: THALIDOMIDE
     Indication: PLASMA CELL MYELOMA
  6. DEXAMETHASONE. [Suspect]
     Active Substance: DEXAMETHASONE
     Indication: PLASMA CELL MYELOMA
     Dosage: ON DAY 1-4, DAY 9-12, DAY 17-20, DAY 25-28. ; CYCLICAL
     Route: 048

REACTIONS (2)
  - Sepsis [Fatal]
  - Pneumonia [Fatal]
